FAERS Safety Report 10029438 (Version 1)
Quarter: 2014Q1

REPORT INFORMATION
  Report Type: Spontaneous
  Country: JP (occurrence: JP)
  Receive Date: 20140322
  Receipt Date: 20140322
  Transmission Date: 20141002
  Serious: Yes (Hospitalization)
  Sender: FDA-Public Use
  Company Number: PHJP2014JP000637

PATIENT
  Sex: Male

DRUGS (2)
  1. RITALIN TAB 10MG [Suspect]
     Dosage: UNK UKN, UNK
     Route: 048
  2. DEPAKENE [Suspect]
     Dosage: UNK UKN, UNK
     Route: 048

REACTIONS (4)
  - Pancreatitis acute [Unknown]
  - General physical health deterioration [Unknown]
  - Psychiatric symptom [Unknown]
  - Withdrawal syndrome [Unknown]
